FAERS Safety Report 18554306 (Version 3)
Quarter: 2021Q2

REPORT INFORMATION
  Report Type: Spontaneous
  Country: JP (occurrence: JP)
  Receive Date: 20201127
  Receipt Date: 20210628
  Transmission Date: 20210717
  Serious: Yes (Death, Hospitalization, Other)
  Sender: FDA-Public Use
  Company Number: JP-JAZZ-2020-JP-015483

PATIENT
  Age: 60 Year
  Sex: Male
  Weight: 64.7 kg

DRUGS (1)
  1. DEFITELIO [Suspect]
     Active Substance: DEFIBROTIDE SODIUM
     Indication: PRODUCT USED FOR UNKNOWN INDICATION
     Dosage: 25 MILLIGRAM/KILOGRAM/24 HOURS
     Route: 042
     Dates: start: 20201109, end: 20201119

REACTIONS (6)
  - Nausea [Unknown]
  - Venoocclusive liver disease [Fatal]
  - Graft versus host disease [Fatal]
  - Diarrhoea [Unknown]
  - Gastrointestinal haemorrhage [Fatal]
  - Vomiting [Unknown]

NARRATIVE: CASE EVENT DATE: 20201113
